FAERS Safety Report 18203459 (Version 3)
Quarter: 2020Q4

REPORT INFORMATION
  Report Type: Spontaneous
  Country: US (occurrence: US)
  Receive Date: 20200827
  Receipt Date: 20201127
  Transmission Date: 20210113
  Serious: Yes (Congenital Anomaly, Other)
  Sender: FDA-Public Use
  Company Number: NVSC2020US234509

PATIENT
  Sex: Male

DRUGS (1)
  1. ZOFRAN [Suspect]
     Active Substance: ONDANSETRON HYDROCHLORIDE
     Indication: FOETAL EXPOSURE DURING PREGNANCY
     Route: 064

REACTIONS (71)
  - Right ventricle outflow tract obstruction [Unknown]
  - Otitis media chronic [Unknown]
  - Lower limb fracture [Unknown]
  - Bronchial hyperreactivity [Unknown]
  - Nasal obstruction [Unknown]
  - Chest pain [Unknown]
  - Right ventricular dilatation [Unknown]
  - Tachypnoea [Unknown]
  - Viral infection [Unknown]
  - Palpitations [Unknown]
  - Prepuce redundant [Unknown]
  - Pulmonary valve stenosis [Unknown]
  - Electrocardiogram ST segment elevation [Unknown]
  - Crush injury [Unknown]
  - Foetal exposure during pregnancy [Unknown]
  - Pyrexia [Unknown]
  - Patent ductus arteriosus [Unknown]
  - Pulmonary congestion [Unknown]
  - Anxiety [Unknown]
  - Ventricular hypertrophy [Unknown]
  - Upper limb fracture [Unknown]
  - Pain in extremity [Unknown]
  - Ear infection [Unknown]
  - Osteopenia [Unknown]
  - Micturition urgency [Unknown]
  - Atrial septal defect [Unknown]
  - Phimosis [Unknown]
  - Tricuspid valve incompetence [Unknown]
  - Adenoidal hypertrophy [Unknown]
  - Pharyngitis [Unknown]
  - Rhinitis allergic [Unknown]
  - Vitello-intestinal duct remnant [Unknown]
  - Pulmonary valve incompetence [Unknown]
  - Cyanosis neonatal [Unknown]
  - Oropharyngeal pain [Unknown]
  - Transposition of the great vessels [Unknown]
  - Left-to-right cardiac shunt [Unknown]
  - Failure to thrive [Unknown]
  - Respiratory distress [Unknown]
  - Mitral valve incompetence [Unknown]
  - Pulmonary artery dilatation [Unknown]
  - Aortic dissection [Unknown]
  - Injury [Unknown]
  - Cardiomegaly [Unknown]
  - Right ventricular enlargement [Unknown]
  - Fatigue [Unknown]
  - Dry skin [Unknown]
  - Abdominal pain [Unknown]
  - Sinus tachycardia [Unknown]
  - Ventricular septal defect [Unknown]
  - Pulmonary artery stenosis congenital [Unknown]
  - Congenital vesicoureteric reflux [Recovered/Resolved]
  - Congenital coronary artery malformation [Unknown]
  - Emotional distress [Unknown]
  - Left atrial enlargement [Unknown]
  - QRS axis abnormal [Unknown]
  - Eczema [Unknown]
  - Bundle branch block right [Unknown]
  - Arthropod bite [Unknown]
  - Central auditory processing disorder [Unknown]
  - Cardiac murmur [Unknown]
  - Heart disease congenital [Unknown]
  - Pain [Unknown]
  - Upper respiratory tract infection [Unknown]
  - Contusion [Unknown]
  - Aortic dilatation [Unknown]
  - Ear pain [Unknown]
  - Seborrhoea [Unknown]
  - Nasal congestion [Unknown]
  - Attention deficit hyperactivity disorder [Unknown]
  - Disturbance in attention [Unknown]
